FAERS Safety Report 10932432 (Version 2)
Quarter: 2015Q2

REPORT INFORMATION
  Report Type: Spontaneous
  Country: US (occurrence: None)
  Receive Date: 20150318
  Receipt Date: 20150430
  Transmission Date: 20150821
  Serious: Yes (Other)
  Sender: FDA-Public Use
  Company Number: US-SEPTODONT-201502672

PATIENT
  Age: 63 Year
  Sex: Male

DRUGS (24)
  1. INSULIN ASPART [Concomitant]
     Active Substance: INSULIN ASPART
  2. INSULIN GLARGINE [Concomitant]
     Active Substance: INSULIN GLARGINE
  3. METFORMIN [Concomitant]
     Active Substance: METFORMIN HYDROCHLORIDE
  4. NORCO 325 (ACETAMINOPHEN; HYDROCODONE BITARTRATE) [Concomitant]
  5. MINITRAN PATCH (NITROGLYCERIN) [Concomitant]
  6. TAMSULOSIN HYDROCHLORIDE) [Concomitant]
  7. NITROSTAT (NITROGLYCERIN) [Concomitant]
  8. RISPERIDONE. [Concomitant]
     Active Substance: RISPERIDONE
  9. VALIUM [Concomitant]
     Active Substance: DIAZEPAM
  10. PLAVIX [Concomitant]
     Active Substance: CLOPIDOGREL BISULFATE
  11. CLONIDINE. [Concomitant]
     Active Substance: CLONIDINE
  12. CITANEST PLAIN [Suspect]
     Active Substance: PRILOCAINE HYDROCHLORIDE
     Indication: LOCAL ANAESTHESIA
     Route: 004
     Dates: start: 20150124, end: 20150124
  13. TIMOLOL [Concomitant]
     Active Substance: TIMOLOL
  14. ACETYLSALICYLIC ACID (AAS) (ACETYLSALICYLIC ACID) [Concomitant]
  15. CITANEST PLAIN [Suspect]
     Active Substance: PRILOCAINE HYDROCHLORIDE
     Indication: LOCAL ANAESTHESIA
     Route: 004
     Dates: start: 20150124, end: 20150124
  16. ISOSORBIDE MONONITRATE. [Concomitant]
     Active Substance: ISOSORBIDE MONONITRATE
  17. METPROLOL [Concomitant]
     Active Substance: METOPROLOL
  18. BRIMONIDINE [Concomitant]
     Active Substance: BRIMONIDINE\BRIMONIDINE TARTRATE
  19. COUMADIN [Concomitant]
     Active Substance: WARFARIN SODIUM
  20. AMLODIPINE AND BENAZEPRIL HYDROCHLORIDE (AMLODIPINE BESYLATE; BENAZEPRIL HYDROCHLORIDE) [Concomitant]
  21. DOCUSATE SODIUM. [Concomitant]
     Active Substance: DOCUSATE SODIUM
  22. TRAMADOL HYDROCHLORIDE. [Concomitant]
     Active Substance: TRAMADOL HYDROCHLORIDE
  23. PANTOPRAZOLE SODIUM) [Concomitant]
  24. MECLIZINE (MECLIZINE HYDROCHLORIDE) [Concomitant]

REACTIONS (1)
  - Angina pectoris [None]

NARRATIVE: CASE EVENT DATE: 20150124
